FAERS Safety Report 6491782-6 (Version None)
Quarter: 2009Q4

REPORT INFORMATION
  Report Type: 
  Country: None (occurrence: None)
  Receive Date: 20091210
  Receipt Date: 20091202
  Transmission Date: 20100525
  Serious: Yes (Hospitalization)
  Sender: FDA-Public Use
  Company Number: TPA2009A04027

PATIENT
  Age: 52 Year
  Sex: Female
  Weight: 123.832 kg

DRUGS (20)
  1. ACTOS [Suspect]
     Indication: TYPE 2 DIABETES MELLITUS
     Dosage: 45 MG, 1 IN 1 D, PER ORAL
     Route: 048
     Dates: start: 20061201
  2. COZAAR [Concomitant]
  3. ALLOPURINOL [Concomitant]
  4. DIAZEPAM [Concomitant]
  5. NEXIUM [Concomitant]
  6. NORVASC [Concomitant]
  7. SUCRALFATE [Concomitant]
  8. MELOXICAM [Concomitant]
  9. SOMA [Concomitant]
  10. PHENERGAN EXPECTORANT W/ CODEINE [Concomitant]
  11. TEMAZEPAM [Concomitant]
  12. TYLENOL WITH CODEINE #4 (CODEINE PHOSPHATE, PARACETAMOL) [Concomitant]
  13. ADVAIR DISKUS 100/50 [Concomitant]
  14. XOPENEX [Concomitant]
  15. GABAPENTIN [Concomitant]
  16. SINGULAIR [Concomitant]
  17. KLOR-CON [Concomitant]
  18. FUROSEMIDE [Concomitant]
  19. LANTUS [Concomitant]
  20. NOVOLOG [Concomitant]

REACTIONS (7)
  - ASTHMA [None]
  - CARDIOMEGALY [None]
  - CHRONIC OBSTRUCTIVE PULMONARY DISEASE [None]
  - DIPLOPIA [None]
  - OEDEMA PERIPHERAL [None]
  - PNEUMONIA [None]
  - WEIGHT DECREASED [None]
